FAERS Safety Report 14393527 (Version 4)
Quarter: 2018Q4

REPORT INFORMATION
  Report Type: Report from Study
  Country: CA (occurrence: CA)
  Receive Date: 20180116
  Receipt Date: 20181211
  Transmission Date: 20190204
  Serious: Yes (Hospitalization, Other)
  Sender: FDA-Public Use
  Company Number: CA-BRISTOL-MYERS SQUIBB COMPANY-BMS-2017-040968

PATIENT
  Age: 69 Year
  Sex: Female

DRUGS (1)
  1. ABATACEPT [Suspect]
     Active Substance: ABATACEPT
     Indication: RHEUMATOID ARTHRITIS
     Dosage: 1000 MG, Q4WK
     Route: 042
     Dates: start: 20120614

REACTIONS (12)
  - Loss of consciousness [Recovered/Resolved]
  - Poor venous access [Unknown]
  - Vein collapse [Recovered/Resolved]
  - Localised infection [Not Recovered/Not Resolved]
  - Fatigue [Recovering/Resolving]
  - Cough [Unknown]
  - Vertigo [Recovered/Resolved]
  - Influenza like illness [Unknown]
  - Fungal infection [Not Recovered/Not Resolved]
  - Pain [Not Recovered/Not Resolved]
  - Discomfort [Recovering/Resolving]
  - Heart rate decreased [Unknown]

NARRATIVE: CASE EVENT DATE: 20171227
